FAERS Safety Report 9256761 (Version 5)
Quarter: 2014Q3

REPORT INFORMATION
  Report Type: Spontaneous
  Country: US (occurrence: US)
  Receive Date: 20130426
  Receipt Date: 20140922
  Transmission Date: 20150326
  Serious: Yes (Hospitalization, Other)
  Sender: FDA-Public Use
  Company Number: US-ASTRAZENECA-2013SE27594

PATIENT
  Age: 83 Year
  Sex: Female
  Weight: 65.8 kg

DRUGS (37)
  1. NEXIUM [Suspect]
     Active Substance: ESOMEPRAZOLE MAGNESIUM
     Indication: GASTROOESOPHAGEAL REFLUX DISEASE
     Route: 048
  2. NEXIUM [Suspect]
     Active Substance: ESOMEPRAZOLE MAGNESIUM
     Indication: HIATUS HERNIA
     Route: 048
     Dates: start: 20030606
  3. MAALOX ANTACID [Concomitant]
     Active Substance: ALUMINUM HYDROXIDE\DIMETHICONE\MAGNESIUM HYDROXIDE
     Indication: GASTROOESOPHAGEAL REFLUX DISEASE
     Dosage: AS NEEDED
     Dates: start: 2004, end: 2011
  4. MILK OF MAGNESIA [Concomitant]
     Active Substance: MAGNESIUM HYDROXIDE
     Indication: GASTROOESOPHAGEAL REFLUX DISEASE
     Dosage: AS NEEDED
     Dates: start: 2004, end: 2011
  5. COLONSPAM [Concomitant]
  6. IRON [Concomitant]
     Active Substance: IRON
  7. TEGRETOL [Concomitant]
     Active Substance: CARBAMAZEPINE
  8. TRAZODONE [Concomitant]
     Active Substance: TRAZODONE HYDROCHLORIDE
     Dates: start: 20040204
  9. NEXIUM [Suspect]
     Active Substance: ESOMEPRAZOLE MAGNESIUM
     Indication: GASTROOESOPHAGEAL REFLUX DISEASE
     Route: 048
     Dates: start: 20030606
  10. ALKASELTZER [Concomitant]
     Indication: GASTROOESOPHAGEAL REFLUX DISEASE
     Dosage: AS NEEDED
     Dates: start: 2004, end: 2011
  11. ZANTAC [Concomitant]
     Active Substance: RANITIDINE HYDROCHLORIDE
     Indication: HIATUS HERNIA
     Dates: start: 2004, end: 2011
  12. VITAMIN D [Concomitant]
     Active Substance: CHOLECALCIFEROL
  13. CLARINEX [Concomitant]
     Active Substance: DESLORATADINE
     Dates: start: 20040204
  14. POTASSIUM CHLORIDE. [Concomitant]
     Active Substance: POTASSIUM CHLORIDE
  15. CARVEDILOL. [Concomitant]
     Active Substance: CARVEDILOL
  16. NEXIUM [Suspect]
     Active Substance: ESOMEPRAZOLE MAGNESIUM
     Indication: HIATUS HERNIA
     Route: 048
     Dates: start: 20040204, end: 2011
  17. ZANTAC [Concomitant]
     Active Substance: RANITIDINE HYDROCHLORIDE
     Indication: GASTROOESOPHAGEAL REFLUX DISEASE
     Dates: start: 2004, end: 2011
  18. PEPCID [Concomitant]
     Active Substance: FAMOTIDINE
     Indication: GASTROOESOPHAGEAL REFLUX DISEASE
     Dates: start: 2004, end: 2011
  19. NEXIUM [Suspect]
     Active Substance: ESOMEPRAZOLE MAGNESIUM
     Indication: HIATUS HERNIA
     Route: 048
  20. GAVISCON [Concomitant]
     Active Substance: ALUMINUM HYDROXIDE\MAGNESIUM CARBONATE
     Indication: GASTROOESOPHAGEAL REFLUX DISEASE
     Dosage: AS NEEDED
     Dates: start: 2004, end: 2011
  21. ZINC [Concomitant]
     Active Substance: ZINC\ZINC CHLORIDE
  22. INDERAL [Concomitant]
     Active Substance: PROPRANOLOL HYDROCHLORIDE
     Dates: start: 20040204
  23. HYDROXYZINE [Concomitant]
     Active Substance: HYDROXYZINE\HYDROXYZINE HYDROCHLORIDE
  24. NEXIUM [Suspect]
     Active Substance: ESOMEPRAZOLE MAGNESIUM
     Indication: GASTROOESOPHAGEAL REFLUX DISEASE
     Route: 048
     Dates: start: 20040204, end: 2011
  25. DEPACOTE [Concomitant]
  26. REGUIP [Concomitant]
  27. ESTROPIPATE. [Concomitant]
     Active Substance: ESTROPIPATE
     Dates: start: 20040204
  28. PREDNISONE. [Concomitant]
     Active Substance: PREDNISONE
  29. PLAVIX [Concomitant]
     Active Substance: CLOPIDOGREL BISULFATE
  30. PEPCID [Concomitant]
     Active Substance: FAMOTIDINE
     Indication: HIATUS HERNIA
     Dates: start: 2004, end: 2011
  31. AMBIEN [Concomitant]
     Active Substance: ZOLPIDEM TARTRATE
  32. ALLOPURINOL. [Concomitant]
     Active Substance: ALLOPURINOL
     Dates: start: 20040204
  33. PRAVACHOL [Concomitant]
     Active Substance: PRAVASTATIN SODIUM
     Dates: start: 20040204
  34. PLASUIT [Concomitant]
  35. REQUIP [Concomitant]
     Active Substance: ROPINIROLE HYDROCHLORIDE
  36. PROTONIX [Concomitant]
     Active Substance: PANTOPRAZOLE SODIUM
  37. CARBATROL [Concomitant]
     Active Substance: CARBAMAZEPINE

REACTIONS (21)
  - Foot fracture [Unknown]
  - Depression [Unknown]
  - Cardiovascular disorder [Unknown]
  - Dyskinesia [Unknown]
  - Osteopenia [Unknown]
  - Myoclonic epilepsy [Unknown]
  - Hip fracture [Unknown]
  - Cataract [Unknown]
  - Cerebrovascular accident [Unknown]
  - Osteoporosis [Unknown]
  - Intervertebral disc degeneration [Unknown]
  - Dystrophic calcification [Unknown]
  - Osteoarthritis [Unknown]
  - Fall [Unknown]
  - Femur fracture [Unknown]
  - Lower limb fracture [Unknown]
  - Scoliosis [Unknown]
  - Lobar pneumonia [Unknown]
  - Wrist fracture [Unknown]
  - Bone disorder [Unknown]
  - Hand fracture [Unknown]

NARRATIVE: CASE EVENT DATE: 2007
